FAERS Safety Report 8777483 (Version 2)
Quarter: 2012Q4

REPORT INFORMATION
  Report Type: 
  Country: US (occurrence: US)
  Receive Date: 20120911
  Receipt Date: 20120911
  Transmission Date: 20130627
  Serious: Yes (Hospitalization)
  Sender: FDA-Public Use
  Company Number: US-ASTRAZENECA-2012SE56564

PATIENT
  Age: 84 Year
  Sex: Male

DRUGS (3)
  1. ESOMEPRAZOLE [Suspect]
     Indication: OESOPHAGITIS HAEMORRHAGIC
     Route: 042
  2. ESOMEPRAZOLE ORAL [Suspect]
     Indication: OESOPHAGITIS HAEMORRHAGIC
     Route: 048
  3. WARFARIN [Concomitant]
     Indication: OESOPHAGITIS HAEMORRHAGIC

REACTIONS (1)
  - Charles Bonnet syndrome [Recovered/Resolved]
